FAERS Safety Report 13072320 (Version 2)
Quarter: 2019Q1

REPORT INFORMATION
  Report Type: Report from Study
  Country: US (occurrence: US)
  Receive Date: 20161229
  Receipt Date: 20190328
  Transmission Date: 20190417
  Serious: No
  Sender: FDA-Public Use
  Company Number: PHHY2016US175815

PATIENT
  Age: 40 Year
  Sex: Male

DRUGS (1)
  1. GILENYA [Suspect]
     Active Substance: FINGOLIMOD HYDROCHLORIDE
     Indication: MULTIPLE SCLEROSIS
     Dosage: QD
     Route: 048

REACTIONS (6)
  - Alanine aminotransferase increased [Unknown]
  - White blood cell count decreased [Recovered/Resolved]
  - Birth mark [Unknown]
  - Aspartate aminotransferase increased [Recovered/Resolved]
  - Lymphocyte count decreased [Recovered/Resolved]
  - Blepharitis [Unknown]

NARRATIVE: CASE EVENT DATE: 20141216
